FAERS Safety Report 9028242 (Version 1)
Quarter: 2013Q1

REPORT INFORMATION
  Report Type: Spontaneous
  Country: US (occurrence: None)
  Receive Date: 20130115
  Receipt Date: 20130115
  Transmission Date: 20140127
  Serious: No
  Sender: FDA-Public Use
  Company Number: None

PATIENT
  Sex: Female
  Weight: 63.5 kg

DRUGS (1)
  1. VIIBRYD [Suspect]
     Indication: DEPRESSION
     Dosage: SEPT 15-30 MORE OR LESS

REACTIONS (3)
  - Hallucination [None]
  - Blood pressure increased [None]
  - Heart rate increased [None]
